FAERS Safety Report 9812991 (Version 1)
Quarter: 2014Q1

REPORT INFORMATION
  Report Type: Spontaneous
  Country: US (occurrence: US)
  Receive Date: 20140113
  Receipt Date: 20140113
  Transmission Date: 20141002
  Serious: No
  Sender: FDA-Public Use
  Company Number: US-009507513-1312USA012568

PATIENT
  Age: 57 Year
  Sex: Female

DRUGS (13)
  1. PEGINTRON [Suspect]
     Indication: HEPATITIS C
     Dosage: 0.4 ML, QW, REDIPEN
     Route: 058
     Dates: start: 201312
  2. REBETOL [Suspect]
     Dosage: UNK
     Route: 048
  3. XANAX [Concomitant]
     Dosage: UNK
     Route: 048
  4. VIACTIV SOFT CALCIUM CHEWS [Concomitant]
     Dosage: UNK
  5. MARINOL (MECOBALAMIN) [Concomitant]
     Dosage: UNK
     Route: 048
  6. NORVASC [Concomitant]
     Dosage: UNK
     Route: 048
  7. VICODIN [Concomitant]
     Dosage: UNK
     Route: 048
  8. SYNTHROID [Concomitant]
     Dosage: UNK
     Route: 048
  9. TEMAZEPAM [Concomitant]
     Dosage: UNK
     Route: 048
  10. AMITRIPTYLIN [Concomitant]
     Dosage: UNK
     Route: 048
  11. PROGRAF [Concomitant]
     Dosage: UNK
     Route: 048
  12. VITAMIN D (UNSPECIFIED) [Concomitant]
     Dosage: UNK
     Route: 048
  13. BACTRIM [Concomitant]
     Dosage: UNK
     Route: 048

REACTIONS (3)
  - Depression [Unknown]
  - Anxiety [Unknown]
  - Medical device complication [Unknown]
